FAERS Safety Report 6391911-9 (Version None)
Quarter: 2009Q4

REPORT INFORMATION
  Report Type: 
  Country: None (occurrence: None)
  Receive Date: 20091007
  Receipt Date: 20090930
  Transmission Date: 20100525
  Serious: Yes (Other)
  Sender: FDA-Public Use
  Company Number: US-JNJFOC-20091001027

PATIENT
  Sex: Female
  Weight: 56.7 kg

DRUGS (5)
  1. DURAGESIC MATRIX [Suspect]
     Indication: COMPLEX REGIONAL PAIN SYNDROME
     Route: 062
     Dates: start: 20090901
  2. MARINOL [Concomitant]
     Indication: NAUSEA
     Route: 048
     Dates: start: 20090101
  3. SOMA [Concomitant]
     Indication: SLEEP DISORDER
     Route: 048
  4. HYDROCODONE [Concomitant]
     Indication: PAIN
     Route: 048
     Dates: start: 20050101
  5. PERCOCET [Concomitant]
     Indication: PAIN
     Dosage: 10/400
     Route: 048

REACTIONS (5)
  - HEADACHE [None]
  - INAPPROPRIATE SCHEDULE OF DRUG ADMINISTRATION [None]
  - MEMORY IMPAIRMENT [None]
  - THERAPEUTIC RESPONSE DECREASED [None]
  - WITHDRAWAL SYNDROME [None]
